FAERS Safety Report 8501043 (Version 4)
Quarter: 2014Q1

REPORT INFORMATION
  Report Type: Report from Study
  Country: JP (occurrence: JP)
  Receive Date: 20120410
  Receipt Date: 20140131
  Transmission Date: 20141002
  Serious: Yes (Other)
  Sender: FDA-Public Use
  Company Number: PHHY2010JP77704

PATIENT
  Age: 47 Year
  Sex: Female

DRUGS (18)
  1. AMN107 [Suspect]
     Indication: CHRONIC MYELOID LEUKAEMIA
     Dosage: 800 MG, DAILY
     Route: 048
     Dates: start: 20091107, end: 20091116
  2. AMN107 [Suspect]
     Dosage: 800 MG, DAILY
     Route: 048
     Dates: start: 20091205, end: 20091211
  3. AMN107 [Suspect]
     Dosage: 400 MG, DAILY
     Route: 048
     Dates: start: 20100109
  4. ULCERLMIN [Suspect]
     Indication: PROPHYLAXIS
     Dosage: 3 G
     Route: 048
     Dates: start: 20100108
  5. PREDONINE [Suspect]
     Indication: PROPHYLAXIS
     Dosage: 10 MG, DAILY
     Route: 048
     Dates: start: 20100109, end: 20100722
  6. TAKEPRON [Concomitant]
     Indication: PROPHYLAXIS
     Dosage: 15 MG, UNK
     Route: 048
     Dates: start: 20090605
  7. TAKEPRON [Concomitant]
     Dosage: 30 MG, UNK
     Route: 048
  8. MUCOSTA [Concomitant]
     Indication: PROPHYLAXIS
     Dosage: 300 MG
     Route: 048
     Dates: start: 20090605, end: 201006
  9. NEUROTROPIN [Concomitant]
     Dosage: 16 IU
     Route: 048
     Dates: start: 20091107
  10. NEUROTROPIN [Concomitant]
     Dosage: 4 DF, UNK
     Route: 048
     Dates: end: 20120223
  11. MYSLEE [Concomitant]
     Dosage: 5 MG
     Route: 048
     Dates: start: 20080906, end: 20120402
  12. SILECE [Concomitant]
     Dosage: 1 MG
     Route: 048
     Dates: start: 20100402
  13. MAGLAX [Concomitant]
     Indication: PROPHYLAXIS
     Dosage: 1980 MG
     Route: 048
     Dates: start: 20100108
  14. GASTER D [Concomitant]
     Dosage: 20 MG
     Route: 048
     Dates: start: 20100529, end: 20100610
  15. LOXONIN [Concomitant]
     Dates: start: 20100909
  16. LYRICA [Concomitant]
     Dosage: 225 MG
     Route: 048
     Dates: start: 20120224
  17. FEROTYM [Concomitant]
     Dosage: 2 DF
     Route: 048
     Dates: start: 20120120
  18. FERRUM//FERROUS FUMARATE [Concomitant]
     Dosage: 1 DF
     Route: 048

REACTIONS (1)
  - Hepatic enzyme increased [Recovered/Resolved]
